FAERS Safety Report 7536877-0 (Version None)
Quarter: 2011Q2

REPORT INFORMATION
  Report Type: 
  Country: None (occurrence: None)
  Receive Date: 20110609
  Receipt Date: 20110526
  Transmission Date: 20111010
  Serious: Yes (Other)
  Sender: FDA-Public Use
  Company Number: DE-ROCHE-781347

PATIENT
  Age: 63 Year
  Sex: Female
  Weight: 54 kg

DRUGS (2)
  1. IBANDRONATE SODIUM [Suspect]
     Indication: OSTEOLYSIS
     Route: 042
  2. IBANDRONATE SODIUM [Suspect]
     Route: 042

REACTIONS (4)
  - GAIT DISTURBANCE [None]
  - HEADACHE [None]
  - PAIN IN EXTREMITY [None]
  - INCONTINENCE [None]
